FAERS Safety Report 5956405-0 (Version None)
Quarter: 2008Q4

REPORT INFORMATION
  Report Type: 
  Country: None (occurrence: None)
  Receive Date: 20081118
  Receipt Date: 20081106
  Transmission Date: 20090506
  Serious: Yes (Other)
  Sender: FDA-Public Use
  Company Number: JP-AVENTIS-200813468JP

PATIENT
  Age: 48 Year
  Sex: Female

DRUGS (8)
  1. CLEXANE [Suspect]
     Indication: HIP ARTHROPLASTY
     Route: 058
  2. CLEXANE [Suspect]
     Route: 058
  3. PANSPORIN [Concomitant]
  4. MEIACT [Concomitant]
     Route: 048
  5. IRZAIM [Concomitant]
     Route: 047
  6. FERROMIA                           /00023516/ [Concomitant]
     Route: 048
  7. LOXONIN                            /00890701/ [Concomitant]
     Route: 048
  8. MUCOSTA [Concomitant]
     Route: 048

REACTIONS (6)
  - ALANINE AMINOTRANSFERASE INCREASED [None]
  - ASPARTATE AMINOTRANSFERASE INCREASED [None]
  - BLOOD ALKALINE PHOSPHATASE INCREASED [None]
  - GAMMA-GLUTAMYLTRANSFERASE INCREASED [None]
  - HEPATIC FUNCTION ABNORMAL [None]
  - MIXED LIVER INJURY [None]
